FAERS Safety Report 20244721 (Version 1)
Quarter: 2021Q4

REPORT INFORMATION
  Report Type: Report from Study
  Country: KR (occurrence: KR)
  Receive Date: 20211229
  Receipt Date: 20211229
  Transmission Date: 20220303
  Serious: Yes (Other)
  Sender: FDA-Public Use
  Company Number: KR-TAKEDA-2021TUS082269

PATIENT
  Sex: Male
  Weight: 62 kg

DRUGS (14)
  1. VEDOLIZUMAB [Suspect]
     Active Substance: VEDOLIZUMAB
     Indication: Colitis ulcerative
     Dosage: 300 MILLIGRAM
     Route: 042
     Dates: start: 20210114
  2. BISOPROLOL FUMARATE [Concomitant]
     Active Substance: BISOPROLOL FUMARATE
     Indication: Renal transplant
     Dosage: 5 MILLIGRAM, QD
     Route: 048
     Dates: start: 20210222
  3. LIPITOR [Concomitant]
     Active Substance: ATORVASTATIN CALCIUM
     Indication: Hyperlipidaemia
     Dosage: 10 MILLIGRAM, QD
     Route: 048
     Dates: start: 20210429
  4. METFORMIN HYDROCHLORIDE [Concomitant]
     Active Substance: METFORMIN HYDROCHLORIDE
     Indication: Hyperglycaemia
     Dosage: UNK, QD
     Route: 048
     Dates: start: 20210429
  5. COLAZAL [Concomitant]
     Active Substance: BALSALAZIDE DISODIUM
     Dosage: 2250 MILLIGRAM, TID
     Route: 048
     Dates: start: 20141008, end: 20210428
  6. COLAZAL [Concomitant]
     Active Substance: BALSALAZIDE DISODIUM
     Dosage: 2250 MILLIGRAM, BID
     Route: 048
     Dates: start: 20210429, end: 20211206
  7. MESALAMINE [Concomitant]
     Active Substance: MESALAMINE
     Dosage: 1200 MILLIGRAM, BID
     Route: 048
     Dates: start: 20171122, end: 20211206
  8. MESALAMINE [Concomitant]
     Active Substance: MESALAMINE
     Dosage: 4800 MILLIGRAM, QD
     Route: 048
     Dates: start: 20211207
  9. LEVOTHYROXINE SODIUM [Concomitant]
     Active Substance: LEVOTHYROXINE SODIUM
     Indication: Thyroid cancer
     Dosage: 100 MICROGRAM
     Route: 048
     Dates: start: 20190625
  10. PRANDIN [Concomitant]
     Active Substance: REPAGLINIDE
     Indication: Renal transplant
     Dosage: 6 MILLIGRAM, QD
     Route: 048
     Dates: start: 20191217
  11. SIROLIMUS [Concomitant]
     Active Substance: SIROLIMUS
     Indication: Renal transplant
     Dosage: 1 MILLIGRAM, QD
     Route: 048
     Dates: start: 20191217
  12. Tacrobell sr [Concomitant]
     Indication: Renal transplant
     Dosage: 4.5 MILLIGRAM, QD
     Route: 048
     Dates: start: 20200318
  13. LIPILOU [Concomitant]
     Indication: Hyperlipidaemia
     Dosage: 20 MILLIGRAM, QD
     Route: 048
     Dates: start: 20201210, end: 20210428
  14. FEBUXOSTAT [Concomitant]
     Active Substance: FEBUXOSTAT
     Indication: Renal transplant
     Dosage: 40 MILLIGRAM, QOD
     Route: 048
     Dates: start: 20180612

REACTIONS (1)
  - Diabetes mellitus [Recovering/Resolving]

NARRATIVE: CASE EVENT DATE: 20210304
